FAERS Safety Report 6421726-4 (Version None)
Quarter: 2009Q4

REPORT INFORMATION
  Report Type: 
  Country: None (occurrence: None)
  Receive Date: 20091030
  Receipt Date: 20091020
  Transmission Date: 20100525
  Serious: Yes (Other)
  Sender: FDA-Public Use
  Company Number: MX-ELI_LILLY_AND_COMPANY-MX200910002113

PATIENT
  Age: 25 Year
  Sex: Female

DRUGS (3)
  1. HUMULIN N [Suspect]
     Dosage: UNK, UNKNOWN
     Route: 065
     Dates: start: 20030101
  2. HUMALOG MIX 75/25 [Suspect]
     Dosage: 40 IU, EACH MORNING
     Route: 058
     Dates: start: 19990101
  3. HUMALOG MIX 75/25 [Suspect]
     Dosage: UNK, EACH EVENING
     Route: 058
     Dates: start: 19990101

REACTIONS (4)
  - ABORTION THREATENED [None]
  - DRUG EXPOSURE DURING PREGNANCY [None]
  - PRE-ECLAMPSIA [None]
  - WEIGHT INCREASED [None]
